FAERS Safety Report 4656253-8 (Version None)
Quarter: 2005Q2

REPORT INFORMATION
  Report Type: 
  Country: None (occurrence: None)
  Receive Date: 20050509
  Receipt Date: 20050315
  Transmission Date: 20051028
  Serious: No
  Sender: FDA-Public Use
  Company Number: US-GLAXOSMITHKLINE-A0549863A

PATIENT
  Age: 69 Year
  Sex: Female

DRUGS (8)
  1. AVANDAMET [Suspect]
     Dosage: 4MG PER DAY
     Route: 048
     Dates: start: 20040801, end: 20041201
  2. AVANDIA [Suspect]
     Dosage: 4MG PER DAY
     Route: 048
     Dates: start: 20041201, end: 20050217
  3. INSULIN [Concomitant]
  4. METOPROLOL [Concomitant]
  5. LIPITOR [Concomitant]
  6. TEVETEN [Concomitant]
  7. GLIPIZIDE [Concomitant]
  8. LEVOTHYROXINE SODIUM [Concomitant]

REACTIONS (3)
  - RENAL DISORDER [None]
  - SWELLING [None]
  - WEIGHT INCREASED [None]
